FAERS Safety Report 9528417 (Version 1)
Quarter: 2013Q3

REPORT INFORMATION
  Report Type: Spontaneous
  Country: DE (occurrence: DE)
  Receive Date: 20130917
  Receipt Date: 20130917
  Transmission Date: 20140515
  Serious: Yes (Disabling)
  Sender: FDA-Public Use
  Company Number: DE-PFIZER INC-2013264011

PATIENT
  Age: 58 Year
  Sex: Female

DRUGS (1)
  1. ORELOX [Suspect]
     Dosage: 200 MG, 2X/DAY
     Route: 048
     Dates: start: 20130724, end: 20130724

REACTIONS (4)
  - Arrhythmia [Not Recovered/Not Resolved]
  - Hypertension [Not Recovered/Not Resolved]
  - Body temperature increased [Not Recovered/Not Resolved]
  - Skin burning sensation [Not Recovered/Not Resolved]
